FAERS Safety Report 7563997-7 (Version None)
Quarter: 2011Q2

REPORT INFORMATION
  Report Type: 
  Country: None (occurrence: None)
  Receive Date: 20110622
  Receipt Date: 20110607
  Transmission Date: 20111010
  Serious: Yes (Death)
  Sender: FDA-Public Use
  Company Number: US-ROCHE-784608

PATIENT
  Sex: Male

DRUGS (2)
  1. BEVACIZUMAB [Suspect]
     Dosage: OVER 30-90 MIN IN CYCLE OF 28 DAYS
     Route: 042
     Dates: start: 20050519
  2. BAY 43-9006 [Suspect]
     Dosage: GIVEN ON DAYS 1-28 OF EACH 28-DAY-CYCLE.
     Route: 048
     Dates: start: 20050519

REACTIONS (1)
  - DEATH [None]
